FAERS Safety Report 24993476 (Version 1)
Quarter: 2025Q1

REPORT INFORMATION
  Report Type: Spontaneous
  Country: JP (occurrence: JP)
  Receive Date: 20250221
  Receipt Date: 20250221
  Transmission Date: 20250408
  Serious: Yes (Death)
  Sender: GLAXOSMITHKLINE
  Company Number: JP-GSK-JP2025JPN020765

PATIENT

DRUGS (3)
  1. MOMELOTINIB [Suspect]
     Active Substance: MOMELOTINIB
     Dates: start: 20241106
  2. HYDREA [Suspect]
     Active Substance: HYDROXYUREA
  3. RUXOLITINIB PHOSPHATE [Concomitant]
     Active Substance: RUXOLITINIB PHOSPHATE

REACTIONS (2)
  - Disease progression [Fatal]
  - Stomatitis [Unknown]
